FAERS Safety Report 8449947-X (Version None)
Quarter: 2012Q2

REPORT INFORMATION
  Report Type: 
  Country: None (occurrence: None)
  Receive Date: 20120620
  Receipt Date: 20120613
  Transmission Date: 20120825
  Serious: Yes (Hospitalization)
  Sender: FDA-Public Use
  Company Number: PHHO2012FR008707

PATIENT
  Sex: Female
  Weight: 63.5 kg

DRUGS (3)
  1. PLACEBO [Suspect]
     Indication: LYMPHANGIOLEIOMYOMATOSIS
     Dosage: CODE NOT BROKEN
     Route: 048
     Dates: start: 20101206
  2. AFINITOR [Suspect]
     Indication: LYMPHANGIOLEIOMYOMATOSIS
     Dosage: CODE NOT BROKEN
     Route: 048
     Dates: start: 20101206
  3. BLINDED NO TREATMENT RECEIVED [Suspect]
     Indication: LYMPHANGIOLEIOMYOMATOSIS
     Dosage: CODE NOT BROKEN
     Route: 048
     Dates: start: 20101206

REACTIONS (1)
  - BREAST HYPOPLASIA [None]
